FAERS Safety Report 7243720-6 (Version None)
Quarter: 2011Q1

REPORT INFORMATION
  Report Type: 
  Country: None (occurrence: None)
  Receive Date: 20110125
  Receipt Date: 20110118
  Transmission Date: 20110831
  Serious: No
  Sender: FDA-Public Use
  Company Number: US-PFIZER INC-2011013232

PATIENT
  Sex: Female

DRUGS (2)
  1. PHENOBARBITAL [Concomitant]
     Indication: CONVULSION
     Dosage: UNK
  2. DILANTIN [Suspect]
     Indication: CONVULSION
     Dosage: 300 MG DAILY
     Route: 048

REACTIONS (1)
  - NEURALGIA [None]
